FAERS Safety Report 5714964-7 (Version None)
Quarter: 2008Q2

REPORT INFORMATION
  Report Type: 
  Country: None (occurrence: None)
  Receive Date: 20080423
  Receipt Date: 20080411
  Transmission Date: 20081010
  Serious: Yes (Life-Threatening)
  Sender: FDA-Public Use
  Company Number: PT-WYE-H03012508

PATIENT
  Sex: Female

DRUGS (1)
  1. CORDARONE [Suspect]
     Indication: ATRIAL FIBRILLATION
     Dosage: 300 MG
     Route: 042
     Dates: start: 20080229, end: 20080229

REACTIONS (4)
  - BRONCHOSPASM [None]
  - CYANOSIS CENTRAL [None]
  - RASH MACULAR [None]
  - RESPIRATORY ARREST [None]
